FAERS Safety Report 14727447 (Version 2)
Quarter: 2018Q2

REPORT INFORMATION
  Report Type: Spontaneous
  Country: CN (occurrence: CN)
  Receive Date: 20180406
  Receipt Date: 20180411
  Transmission Date: 20180711
  Serious: Yes (Other)
  Sender: FDA-Public Use
  Company Number: CN-ROCHE-2102197

PATIENT
  Age: 26 Year
  Sex: Female

DRUGS (1)
  1. ACTILYSE [Suspect]
     Active Substance: ALTEPLASE
     Indication: ISCHAEMIC STROKE
     Route: 042

REACTIONS (7)
  - Mitral valve incompetence [Unknown]
  - Cerebral infarction [Unknown]
  - Embolism [Unknown]
  - Cerebellar haemorrhage [Unknown]
  - Cerebral haemorrhage [Unknown]
  - Mitral valve prolapse [Unknown]
  - Maternal exposure during pregnancy [Unknown]
